FAERS Safety Report 9606911 (Version 2)
Quarter: 2013Q4

REPORT INFORMATION
  Report Type: Spontaneous
  Country: US (occurrence: US)
  Receive Date: 20131008
  Receipt Date: 20131008
  Transmission Date: 20140711
  Serious: No
  Sender: FDA-Public Use
  Company Number: US-AMGEN-USASP2013060292

PATIENT
  Age: 77 Year
  Sex: Male
  Weight: 58.96 kg

DRUGS (6)
  1. PROLIA [Suspect]
     Indication: OSTEOPOROSIS
     Dosage: 60 MG, ONE TIME
     Route: 058
     Dates: start: 20130321
  2. ASA [Concomitant]
     Dosage: 81 MG, QD
  3. ATORVASTATIN [Concomitant]
     Dosage: 20 MG, QD
  4. LISINOPRIL [Concomitant]
     Dosage: 25 MG, QD
  5. TAMSULOSIN [Concomitant]
     Dosage: 0.4 MG, QD
  6. METOPROLOL [Concomitant]
     Dosage: 10 MG, QD

REACTIONS (3)
  - Pain [Unknown]
  - Contusion [Unknown]
  - Back pain [Recovered/Resolved]
